FAERS Safety Report 6148678-9 (Version None)
Quarter: 2009Q2

REPORT INFORMATION
  Report Type: 
  Country: None (occurrence: None)
  Receive Date: 20090406
  Receipt Date: 20090406
  Transmission Date: 20091009
  Serious: Yes (Other)
  Sender: FDA-Public Use
  Company Number: None

PATIENT
  Age: 14 Year
  Sex: Male
  Weight: 55.3388 kg

DRUGS (1)
  1. TRIPLE ANTIBIOTIC OINTMENT PLUS MAXIMUM STRENGTH SAFEWAY [Suspect]
     Indication: SCRATCH
     Dosage: SMALL AMOUNT ONCE
     Dates: start: 20090404, end: 20090404

REACTIONS (6)
  - ERYTHEMA [None]
  - EYE PAIN [None]
  - EYE PRURITUS [None]
  - LIP SWELLING [None]
  - PRURITUS GENERALISED [None]
  - URTICARIA [None]
